FAERS Safety Report 11361365 (Version 2)
Quarter: 2015Q4

REPORT INFORMATION
  Report Type: Spontaneous
  Country: FR (occurrence: FR)
  Receive Date: 20150810
  Receipt Date: 20151123
  Transmission Date: 20160304
  Serious: Yes (Hospitalization)
  Sender: FDA-Public Use
  Company Number: FR-PFIZER INC-2015257677

PATIENT
  Age: 70 Year
  Sex: Male

DRUGS (5)
  1. CORDARONE [Concomitant]
     Active Substance: AMIODARONE HYDROCHLORIDE
     Indication: ATRIAL FIBRILLATION
     Dosage: UNK
     Dates: start: 20150625
  2. LASILIX /00032601/ [Concomitant]
     Active Substance: FUROSEMIDE
     Dosage: UNK
     Dates: start: 20150629
  3. DALACINE [Suspect]
     Active Substance: CLINDAMYCIN HYDROCHLORIDE
     Dosage: UNK
     Route: 048
     Dates: start: 20150630, end: 20150710
  4. XARELTO [Suspect]
     Active Substance: RIVAROXABAN
     Indication: ATRIAL FIBRILLATION
     Dosage: UNK
     Dates: start: 20150625, end: 20150710
  5. DIFFU K [Concomitant]
     Active Substance: POTASSIUM CHLORIDE
     Dosage: UNK
     Dates: start: 20150629

REACTIONS (1)
  - Vascular purpura [Recovered/Resolved]

NARRATIVE: CASE EVENT DATE: 20150709
